FAERS Safety Report 7331923-1 (Version None)
Quarter: 2011Q1

REPORT INFORMATION
  Report Type: 
  Country: None (occurrence: None)
  Receive Date: 20110304
  Receipt Date: 20091218
  Transmission Date: 20110831
  Serious: No
  Sender: FDA-Public Use
  Company Number: US-PFIZER INC-2009283130

PATIENT
  Sex: Male
  Weight: 97.5 kg

DRUGS (1)
  1. CAVERJECT [Suspect]
     Indication: ERECTILE DYSFUNCTION
     Dosage: 40 UG, UNK
     Route: 017
     Dates: start: 20020101

REACTIONS (1)
  - DRUG INEFFECTIVE [None]
